FAERS Safety Report 6215188-X (Version None)
Quarter: 2009Q2

REPORT INFORMATION
  Report Type: 
  Country: None (occurrence: None)
  Receive Date: 20090604
  Receipt Date: 20090601
  Transmission Date: 20091009
  Serious: Yes (Other)
  Sender: FDA-Public Use
  Company Number: NL-BRISTOL-MYERS SQUIBB COMPANY-14645717

PATIENT
  Age: 47 Year
  Sex: Male

DRUGS (4)
  1. EFAVIRENZ [Interacting]
     Indication: ANTIRETROVIRAL THERAPY
  2. GINKGO BILOBA [Interacting]
  3. EMTRICITABINE [Suspect]
     Indication: ANTIRETROVIRAL THERAPY
  4. TENOFOVIR DISOPROXIL FUMARATE [Suspect]
     Indication: ANTIRETROVIRAL THERAPY

REACTIONS (2)
  - DRUG INTERACTION [None]
  - VIROLOGIC FAILURE [None]
